FAERS Safety Report 11897575 (Version 2)
Quarter: 2016Q1

REPORT INFORMATION
  Report Type: Spontaneous
  Country: US (occurrence: US)
  Receive Date: 20160108
  Receipt Date: 20160224
  Transmission Date: 20160526
  Serious: Yes (Other)
  Sender: FDA-Public Use
  Company Number: US-BEH-2015057411

PATIENT
  Sex: Female
  Weight: 88 kg

DRUGS (33)
  1. ALENDRONATE [Concomitant]
     Active Substance: ALENDRONATE SODIUM
  2. LEVOTHYROXINE. [Concomitant]
     Active Substance: LEVOTHYROXINE
  3. CALCIUM [Concomitant]
     Active Substance: CALCIUM
  4. ALLEGRA [Concomitant]
     Active Substance: FEXOFENADINE HYDROCHLORIDE
  5. HIZENTRA [Suspect]
     Active Substance: HUMAN IMMUNOGLOBULIN G
     Dosage: 4 GM 20 ML VIAL
     Route: 058
     Dates: start: 20131009
  6. ESTRADIOL. [Concomitant]
     Active Substance: ESTRADIOL
  7. DETROL [Concomitant]
     Active Substance: TOLTERODINE TARTRATE
  8. REVATIO [Concomitant]
     Active Substance: SILDENAFIL CITRATE
  9. VICKS [Concomitant]
     Active Substance: MENTHOL\OXYMETAZOLINE HYDROCHLORIDE\PHENYLEPHRINE HYDROCHLORIDE
  10. CELEBREX [Concomitant]
     Active Substance: CELECOXIB
  11. SINGULAIR [Concomitant]
     Active Substance: MONTELUKAST SODIUM
  12. ZOLPIDEM [Concomitant]
     Active Substance: ZOLPIDEM\ZOLPIDEM TARTRATE
  13. ACETAMINOPHEN. [Concomitant]
     Active Substance: ACETAMINOPHEN
  14. EPIPEN [Concomitant]
     Active Substance: EPINEPHRINE
  15. AMLODIPINE [Concomitant]
     Active Substance: AMLODIPINE BESYLATE
  16. BUPAP [Concomitant]
     Active Substance: ACETAMINOPHEN\BUTALBITAL
  17. LASIX [Concomitant]
     Active Substance: FUROSEMIDE
  18. CEFAZOLIN [Concomitant]
     Active Substance: CEFAZOLIN
  19. POTASSIUM [Concomitant]
     Active Substance: POTASSIUM
  20. METOLAZONE. [Concomitant]
     Active Substance: METOLAZONE
  21. SPIRONOLACTONE. [Concomitant]
     Active Substance: SPIRONOLACTONE
  22. TRACLEER [Concomitant]
     Active Substance: BOSENTAN
  23. HIZENTRA [Suspect]
     Active Substance: HUMAN IMMUNOGLOBULIN G
     Indication: COMBINED IMMUNODEFICIENCY
     Dosage: 2 GM 10 ML VIAL
     Route: 058
     Dates: start: 20131009
  24. NITROFURANTOIN. [Concomitant]
     Active Substance: NITROFURANTOIN
  25. DIPHENHYDRAMINE. [Concomitant]
     Active Substance: DIPHENHYDRAMINE
  26. RESTASIS [Concomitant]
     Active Substance: CYCLOSPORINE
  27. HYDROXYCHLOROQUINE [Concomitant]
     Active Substance: HYDROXYCHLOROQUINE
  28. OXYGEN. [Concomitant]
     Active Substance: OXYGEN
  29. WARFARIN [Concomitant]
     Active Substance: WARFARIN
  30. LANOXIN [Concomitant]
     Active Substance: DIGOXIN
  31. OMEPRAZOLE. [Concomitant]
     Active Substance: OMEPRAZOLE
  32. FLONASE [Concomitant]
     Active Substance: FLUTICASONE PROPIONATE
  33. HEPARIN [Concomitant]
     Active Substance: HEPARIN SODIUM

REACTIONS (1)
  - Respiratory tract infection [Unknown]
